FAERS Safety Report 9452272 (Version 1)
Quarter: 2013Q3

REPORT INFORMATION
  Report Type: Spontaneous
  Country: US (occurrence: None)
  Receive Date: 20130808
  Receipt Date: 20130808
  Transmission Date: 20140515
  Serious: No
  Sender: FDA-Public Use
  Company Number: None

PATIENT
  Age: 47 Year
  Sex: Female

DRUGS (1)
  1. TECFIDERA STARTER PAK, 120MG AND 240 MG, BIOGEN IDEC [Suspect]
     Indication: MULTIPLE SCLEROSIS
     Dosage: TECFIDERA STARTER PACK
     Route: 048
     Dates: start: 20130624, end: 20130801

REACTIONS (2)
  - Ill-defined disorder [None]
  - Activities of daily living impaired [None]
